FAERS Safety Report 4732532-0 (Version None)
Quarter: 2005Q3

REPORT INFORMATION
  Report Type: 
  Country: None (occurrence: None)
  Receive Date: 20050803
  Receipt Date: 20050324
  Transmission Date: 20060218
  Serious: Yes (Other)
  Sender: FDA-Public Use
  Company Number: SER/8/2021

PATIENT
  Sex: Male

DRUGS (2)
  1. PAROXETINE [Suspect]
     Route: 065
     Dates: start: 19980101
  2. THIORIDAZINE HCL [Concomitant]
     Dosage: 25MG TWICE PER DAY
     Route: 065
     Dates: start: 19980101

REACTIONS (6)
  - AGGRESSION [None]
  - COMPLETED SUICIDE [None]
  - DRUG WITHDRAWAL SYNDROME [None]
  - MOOD ALTERED [None]
  - MOOD SWINGS [None]
  - PARAESTHESIA [None]
